FAERS Safety Report 5449522-5 (Version None)
Quarter: 2007Q3

REPORT INFORMATION
  Report Type: 
  Country: None (occurrence: None)
  Receive Date: 20070907
  Receipt Date: 20070827
  Transmission Date: 20080115
  Serious: Yes (Other)
  Sender: FDA-Public Use
  Company Number: 07-001771

PATIENT
  Age: 40 Year
  Sex: Female
  Weight: 54.4 kg

DRUGS (2)
  1. FEMRING [Suspect]
     Indication: ARTIFICIAL MENOPAUSE
     Dosage: 0.1 MG, QD, VAGINAL
     Route: 067
     Dates: start: 20050101
  2. SYNTHROID [Concomitant]

REACTIONS (4)
  - DISEASE RECURRENCE [None]
  - DRUG INEFFECTIVE [None]
  - RHEUMATOID ARTHRITIS [None]
  - VULVOVAGINAL MYCOTIC INFECTION [None]
